FAERS Safety Report 9336409 (Version 1)
Quarter: 2013Q2

REPORT INFORMATION
  Report Type: Spontaneous
  Country: CN (occurrence: CN)
  Receive Date: 20130607
  Receipt Date: 20130607
  Transmission Date: 20140414
  Serious: Yes (Hospitalization)
  Sender: FDA-Public Use
  Company Number: CN-JNJFOC-20130602538

PATIENT
  Age: 1 Year
  Sex: Male
  Weight: 12 kg

DRUGS (1)
  1. INFANTS^ TYLENOL [Suspect]
     Indication: PYREXIA
     Dosage: ONE ML 4 TIMES A DAY
     Route: 048
     Dates: start: 20121101, end: 20121102

REACTIONS (2)
  - Oedema [Recovered/Resolved]
  - Eyelid oedema [None]
